FAERS Safety Report 10273058 (Version 1)
Quarter: 2014Q3

REPORT INFORMATION
  Report Type: Spontaneous
  Country: CA (occurrence: US)
  Receive Date: 20140702
  Receipt Date: 20140702
  Transmission Date: 20150326
  Serious: No
  Sender: FDA-Public Use
  Company Number: CA-AMGEN-USASP2014046473

PATIENT
  Age: 40 Year
  Sex: Male

DRUGS (5)
  1. PREDNISONE. [Suspect]
     Active Substance: PREDNISONE
     Indication: STILL^S DISEASE ADULT ONSET
     Dosage: 20 MG, TID
     Route: 065
  2. ENBREL [Suspect]
     Active Substance: ETANERCEPT
     Indication: STILL^S DISEASE ADULT ONSET
     Dosage: 25 MG, 2 TIMES/WK
     Route: 058
  3. METHOTREXATE (METHOTREXATE SODIUM) [Suspect]
     Active Substance: METHOTREXATE SODIUM
     Indication: STILL^S DISEASE ADULT ONSET
     Dosage: 25 MG, QWK  BY 3 MONTHS
     Route: 058
  4. PREDNISONE. [Suspect]
     Active Substance: PREDNISONE
     Dosage: 20 MG, QD
     Route: 065
  5. PREDNISONE. [Suspect]
     Active Substance: PREDNISONE
     Dosage: 15 MG, QD
     Route: 065

REACTIONS (1)
  - Arthritis [Not Recovered/Not Resolved]
